FAERS Safety Report 13361266 (Version 5)
Quarter: 2017Q3

REPORT INFORMATION
  Report Type: Spontaneous
  Country: JP (occurrence: JP)
  Receive Date: 20170322
  Receipt Date: 20170703
  Transmission Date: 20171127
  Serious: Yes (Other)
  Sender: FDA-Public Use
  Company Number: JP-MYLANLABS-2017M1018050

PATIENT

DRUGS (1)
  1. EPIPEN [Suspect]
     Active Substance: EPINEPHRINE
     Dosage: 0.3 MG, UNK

REACTIONS (4)
  - Needle issue [Unknown]
  - Product quality issue [Unknown]
  - Device use issue [Unknown]
  - Device failure [Unknown]

NARRATIVE: CASE EVENT DATE: 201612
